FAERS Safety Report 4456625-0 (Version None)
Quarter: 2004Q3

REPORT INFORMATION
  Report Type: 
  Country: None (occurrence: None)
  Receive Date: 20040923
  Receipt Date: 20040906
  Transmission Date: 20050211
  Serious: Yes (Other)
  Sender: FDA-Public Use
  Company Number: PHRM2004FR02723

PATIENT
  Age: 80 Year
  Sex: Female

DRUGS (5)
  1. LESCOL [Suspect]
     Indication: HYPERCHOLESTEROLAEMIA
     Dosage: 80 MG, QD
     Route: 048
     Dates: start: 20031211, end: 20040724
  2. SOTALEX [Suspect]
     Indication: ANGINA PECTORIS
     Dosage: 80 MG, QD
     Route: 048
     Dates: start: 20040720
  3. DAFLON 500 [Concomitant]
  4. ASPIRIN [Concomitant]
     Dates: start: 20040720
  5. DIGOXIN [Concomitant]
     Dosage: UNK, UNK
     Dates: start: 20040720

REACTIONS (6)
  - ABDOMINAL PAIN UPPER [None]
  - ALANINE AMINOTRANSFERASE INCREASED [None]
  - BRAIN NATRIURETIC PEPTIDE ABNORMAL [None]
  - CHEST DISCOMFORT [None]
  - MYOGLOBIN BLOOD INCREASED [None]
  - NAUSEA [None]
